FAERS Safety Report 18328420 (Version 1)
Quarter: 2020Q3

REPORT INFORMATION
  Report Type: Spontaneous
  Country: FR (occurrence: FR)
  Receive Date: 20200930
  Receipt Date: 20200930
  Transmission Date: 20201103
  Serious: Yes (Hospitalization)
  Sender: FDA-Public Use
  Company Number: FR-TEVA-2020-FR-1832183

PATIENT
  Age: 82 Year
  Sex: Male
  Weight: 75.8 kg

DRUGS (18)
  1. BUDESONIDE. [Concomitant]
     Active Substance: BUDESONIDE
  2. FUROSEMIDE. [Concomitant]
     Active Substance: FUROSEMIDE
  3. INNOHEP [Concomitant]
     Active Substance: TINZAPARIN SODIUM
  4. ULTIBRO BREEZHALER [Concomitant]
     Active Substance: GLYCOPYRRONIUM\INDACATEROL
  5. PARACETAMOL [Concomitant]
     Active Substance: ACETAMINOPHEN
  6. ATENOLOL. [Concomitant]
     Active Substance: ATENOLOL
  7. TARDYFERON [Concomitant]
     Active Substance: FERROUS SULFATE
  8. FENTANYL. [Suspect]
     Active Substance: FENTANYL
     Indication: PRODUCT USED FOR UNKNOWN INDICATION
     Route: 065
     Dates: start: 20200730, end: 20200812
  9. BRIMONIDINE [Concomitant]
     Active Substance: BRIMONIDINE TARTRATE
  10. ATORVASTATINE [Concomitant]
     Active Substance: ATORVASTATIN
  11. MEROPENEM ARROW 1 G, POUDRE POUR SOLUTION INJECTABLE/POUR PERFUSION [Suspect]
     Active Substance: MEROPENEM
     Indication: LUNG DISORDER
     Dosage: 3 GRAM
     Route: 042
     Dates: start: 20200804
  12. SPIRIVA [Concomitant]
     Active Substance: TIOTROPIUM BROMIDE MONOHYDRATE
  13. MOVICOL [Concomitant]
     Active Substance: POLYETHYLENE GLYCOL 3350\POTASSIUM CHLORIDE\SODIUM BICARBONATE\SODIUM CHLORIDE
  14. BACTRIM [Suspect]
     Active Substance: SULFAMETHOXAZOLE\TRIMETHOPRIM
     Indication: LUNG DISORDER
     Dosage: 800MG
     Route: 042
     Dates: start: 20200804, end: 20200813
  15. ALFUZOSINE (CHLORHYDRATE D^) [Concomitant]
     Active Substance: ALFUZOSIN HYDROCHLORIDE
  16. PREGABALINE [Concomitant]
     Active Substance: PREGABALIN
  17. DIFFU K [Concomitant]
     Active Substance: POTASSIUM CHLORIDE
  18. CLONAZEPAM. [Concomitant]
     Active Substance: CLONAZEPAM

REACTIONS (1)
  - Disturbance in attention [Recovered/Resolved]

NARRATIVE: CASE EVENT DATE: 20200811
